FAERS Safety Report 16237773 (Version 1)
Quarter: 2019Q2

REPORT INFORMATION
  Report Type: Spontaneous
  Country: US (occurrence: US)
  Receive Date: 20190425
  Receipt Date: 20190425
  Transmission Date: 20190711
  Serious: Yes (Hospitalization)
  Sender: FDA-Public Use
  Company Number: US-TEVA-2019-US-1041892

PATIENT
  Sex: Female
  Weight: 61.29 kg

DRUGS (7)
  1. REVATIO [Suspect]
     Active Substance: SILDENAFIL CITRATE
     Indication: JOINT SWELLING
  2. NORCO [Suspect]
     Active Substance: ACETAMINOPHEN\HYDROCODONE BITARTRATE
     Indication: PAIN
     Dosage: 5-325MG
     Route: 065
  3. ATENOLOL. [Suspect]
     Active Substance: ATENOLOL
     Route: 065
  4. CITALOPRAM [Suspect]
     Active Substance: CITALOPRAM HYDROBROMIDE
     Route: 065
  5. CYCLOBENZAPRINE. [Suspect]
     Active Substance: CYCLOBENZAPRINE
     Indication: PAIN
     Route: 065
  6. MELOXICAM. [Suspect]
     Active Substance: MELOXICAM
     Indication: PAIN
     Route: 065
  7. REVATIO [Suspect]
     Active Substance: SILDENAFIL CITRATE
     Indication: BACK PAIN
     Dosage: 60 MILLIGRAM DAILY;
     Route: 048

REACTIONS (2)
  - Cardiac disorder [Unknown]
  - Joint swelling [Unknown]
